FAERS Safety Report 22017863 (Version 2)
Quarter: 2023Q2

REPORT INFORMATION
  Report Type: Spontaneous
  Country: IN (occurrence: IN)
  Receive Date: 20230221
  Receipt Date: 20230523
  Transmission Date: 20230721
  Serious: Yes (Hospitalization, Other)
  Sender: FDA-Public Use
  Company Number: IN-BRISTOL-MYERS SQUIBB COMPANY-2023-023294

PATIENT
  Age: 61 Year
  Sex: Male

DRUGS (2)
  1. NIVOLUMAB [Suspect]
     Active Substance: NIVOLUMAB
     Indication: Metastatic malignant melanoma
     Route: 042
  2. IPILIMUMAB [Suspect]
     Active Substance: IPILIMUMAB
     Indication: Metastatic malignant melanoma
     Route: 042

REACTIONS (4)
  - Colitis [Unknown]
  - Pyrexia [Recovered/Resolved]
  - Eye pain [Recovered/Resolved]
  - Off label use [Unknown]
